FAERS Safety Report 8305493-5 (Version None)
Quarter: 2012Q2

REPORT INFORMATION
  Report Type: 
  Country: None (occurrence: None)
  Receive Date: 20120423
  Receipt Date: 20120418
  Transmission Date: 20120825
  Serious: Yes (Other)
  Sender: FDA-Public Use
  Company Number: US-GLAXOSMITHKLINE-A0974185A

PATIENT
  Age: 65 Year
  Sex: Male

DRUGS (15)
  1. JANUVIA [Concomitant]
  2. PREDNISONE [Concomitant]
  3. AMLODIPINE BESYLATE AND BENAZEPRIL HCL [Concomitant]
  4. VYTORIN [Concomitant]
  5. ASACOL [Concomitant]
  6. OMEPRAZOLE [Concomitant]
  7. DIOVAN HCT [Concomitant]
  8. FINASTERIDE [Concomitant]
  9. GLYBURIDE [Concomitant]
  10. CALCIUM [Concomitant]
  11. ADVAIR DISKUS 100/50 [Suspect]
     Indication: CHRONIC OBSTRUCTIVE PULMONARY DISEASE
     Dosage: 1PUFF TWICE PER DAY
     Route: 055
     Dates: start: 20070101
  12. VITAMIN AND MINERAL PRENATAL SUPPLEMENT W/ FOLIC ACID CAP [Concomitant]
  13. VITAMIN B-12 [Concomitant]
  14. VITAMIN E [Concomitant]
  15. DICYCLOMINE [Concomitant]

REACTIONS (3)
  - BRONCHITIS [None]
  - PNEUMONIA [None]
  - DRUG ADMINISTRATION ERROR [None]
